FAERS Safety Report 5811326-9 (Version None)
Quarter: 2008Q3

REPORT INFORMATION
  Report Type: 
  Country: None (occurrence: None)
  Receive Date: 20080715
  Receipt Date: 20080708
  Transmission Date: 20090109
  Serious: Yes (Death)
  Sender: FDA-Public Use
  Company Number: APP200800634

PATIENT
  Age: 51 Year
  Sex: Male

DRUGS (6)
  1. HEPARIN SODIUM INJECTION [Suspect]
     Indication: MYOCARDIAL INFARCTION
     Dosage: INTRAVENOUS BOLUS; INTRAVENOUS
     Route: 040
     Dates: start: 20080425, end: 20080425
  2. HEPARIN SODIUM INJECTION [Suspect]
     Indication: MYOCARDIAL INFARCTION
     Dosage: INTRAVENOUS BOLUS; INTRAVENOUS
     Route: 040
     Dates: start: 20080425, end: 20080425
  3. PLAVIX [Suspect]
     Indication: PROPHYLAXIS
     Dosage: ORAL
     Route: 048
     Dates: start: 20080425, end: 20080425
  4. REOPRO [Suspect]
     Indication: PERCUTANEOUS CORONARY INTERVENTION
     Dates: start: 20080425, end: 20080425
  5. ANGIOMAX [Suspect]
     Indication: PERCUTANEOUS CORONARY INTERVENTION
     Dosage: INTRAVENOUS BOLUS; INTRAVENOUS
     Route: 040
     Dates: start: 20080425, end: 20080425
  6. ANGIOMAX [Suspect]
     Indication: PERCUTANEOUS CORONARY INTERVENTION
     Dosage: INTRAVENOUS BOLUS; INTRAVENOUS
     Route: 040
     Dates: start: 20080425, end: 20080425

REACTIONS (13)
  - AGGRESSION [None]
  - BRADYCARDIA [None]
  - CARDIAC ARREST [None]
  - HAEMATOMA [None]
  - HYPOTENSION [None]
  - LACERATION [None]
  - LOSS OF CONSCIOUSNESS [None]
  - NAUSEA [None]
  - PALLOR [None]
  - PULSE ABSENT [None]
  - RETROPERITONEAL HAEMORRHAGE [None]
  - SCROTAL SWELLING [None]
  - VASCULAR INJURY [None]
